FAERS Safety Report 8437221-7 (Version None)
Quarter: 2012Q2

REPORT INFORMATION
  Report Type: 
  Country: None (occurrence: None)
  Receive Date: 20120614
  Receipt Date: 20120426
  Transmission Date: 20120825
  Serious: No
  Sender: FDA-Public Use
  Company Number: US-AMGEN-USASP2011017565

PATIENT
  Age: 69 Year
  Sex: Female

DRUGS (3)
  1. CORTISONE ACETATE [Concomitant]
  2. PROLIA [Suspect]
     Indication: OSTEOPOROSIS POSTMENOPAUSAL
     Dosage: 60 MG, Q6MO
     Dates: start: 20110301
  3. XOLAIR [Concomitant]

REACTIONS (9)
  - CONSTIPATION [None]
  - TOOTH FRACTURE [None]
  - ARTHRITIS [None]
  - ARTHRALGIA [None]
  - MYALGIA [None]
  - PAIN IN EXTREMITY [None]
  - ORAL INFECTION [None]
  - TOOTH DISORDER [None]
  - DENTAL CARIES [None]
